FAERS Safety Report 13915707 (Version 1)
Quarter: 2017Q3

REPORT INFORMATION
  Report Type: Spontaneous
  Country: US (occurrence: US)
  Receive Date: 20170829
  Receipt Date: 20170829
  Transmission Date: 20171127
  Serious: No
  Sender: FDA-Public Use
  Company Number: US-MYLANLABS-2017M1002266

PATIENT
  Age: 69 Year
  Sex: Female
  Weight: 69.39 kg

DRUGS (2)
  1. CLONIDINE TRANSDERMAL SYSTEM [Suspect]
     Active Substance: CLONIDINE
     Indication: BLOOD PRESSURE MANAGEMENT
     Dosage: 0.1 MG, ONCE
     Route: 062
     Dates: start: 20170112, end: 20170112
  2. CLONIDINE. [Concomitant]
     Active Substance: CLONIDINE
     Indication: BLOOD PRESSURE MEASUREMENT
     Dosage: 0.1 MG, QD
     Route: 048

REACTIONS (2)
  - Tongue oedema [Recovering/Resolving]
  - Pain in extremity [Recovering/Resolving]

NARRATIVE: CASE EVENT DATE: 20170112
